FAERS Safety Report 18702819 (Version 2)
Quarter: 2021Q2

REPORT INFORMATION
  Report Type: Report from Study
  Country: LB (occurrence: LB)
  Receive Date: 20210105
  Receipt Date: 20210615
  Transmission Date: 20210717
  Serious: Yes (Other)
  Sender: FDA-Public Use
  Company Number: LB-SEATTLE GENETICS-2020SGN05724

PATIENT
  Sex: Male

DRUGS (2)
  1. BRENTUXIMAB VEDOTIN [Suspect]
     Active Substance: BRENTUXIMAB VEDOTIN
     Indication: HODGKIN^S DISEASE
     Dosage: 150 MILLIGRAM
     Route: 042
     Dates: start: 20200928
  2. BRENTUXIMAB VEDOTIN [Suspect]
     Active Substance: BRENTUXIMAB VEDOTIN
     Dosage: 100 MILLIGRAM
     Route: 042
     Dates: end: 20210517

REACTIONS (2)
  - Memory impairment [Unknown]
  - Neuropathy peripheral [Recovering/Resolving]
